FAERS Safety Report 10488350 (Version 1)
Quarter: 2014Q4

REPORT INFORMATION
  Report Type: Spontaneous
  Country: IE (occurrence: IE)
  Receive Date: 20141002
  Receipt Date: 20141002
  Transmission Date: 20150528
  Serious: Yes (Other)
  Sender: FDA-Public Use
  Company Number: IE-INDICUS PHARMA-000279

PATIENT
  Age: 82 Year
  Sex: Female

DRUGS (1)
  1. METFORMIN [Suspect]
     Active Substance: METFORMIN HYDROCHLORIDE
     Indication: TYPE 2 DIABETES MELLITUS

REACTIONS (6)
  - Anaemia macrocytic [Recovering/Resolving]
  - Confusional state [Recovering/Resolving]
  - Vitamin B12 deficiency [Recovering/Resolving]
  - Pancytopenia [Recovering/Resolving]
  - Ataxia [Recovered/Resolved]
  - Haemolysis [Unknown]
